FAERS Safety Report 25448231 (Version 7)
Quarter: 2025Q4

REPORT INFORMATION
  Report Type: Report from Study
  Country: US (occurrence: US)
  Receive Date: 20250617
  Receipt Date: 20251208
  Transmission Date: 20260118
  Serious: Yes (Hospitalization)
  Sender: ABBVIE
  Company Number: US-ABBVIE-6300579

PATIENT
  Age: 69 Year
  Sex: Male

DRUGS (6)
  1. VENCLEXTA [Suspect]
     Active Substance: VENETOCLAX
     Indication: Chronic lymphocytic leukaemia
     Dosage: 4 TABLETS OF 100 MILLIGRAMS ONCE A DAY?STOP DATE: 2024
     Route: 048
     Dates: start: 20240109
  2. VENCLEXTA [Suspect]
     Active Substance: VENETOCLAX
     Indication: Chronic lymphocytic leukaemia
     Dosage: 4 TABLETS OF 100 MILLIGRAMS ONCE A DAY
     Route: 048
     Dates: start: 20250109
  3. VENCLEXTA [Suspect]
     Active Substance: VENETOCLAX
     Indication: Chronic lymphocytic leukaemia
     Dosage: 4 TABLETS OF 100 MILLIGRAMS ONCE A DAY, START DATE: MAY 2025
     Route: 048
     Dates: start: 20240109, end: 20250522
  4. VENCLEXTA [Suspect]
     Active Substance: VENETOCLAX
     Indication: Chronic lymphocytic leukaemia
     Dosage: 4 TABLETS OF 100 MILLIGRAMS ONCE A DAY
     Route: 048
     Dates: start: 202412
  5. VENCLEXTA [Suspect]
     Active Substance: VENETOCLAX
     Indication: Chronic lymphocytic leukaemia
     Dosage: DOSE REDUCED, FIRST ADMIN 2025?DISCONTINUED
     Route: 048
     Dates: end: 202509
  6. VENCLEXTA [Suspect]
     Active Substance: VENETOCLAX
     Indication: Chronic lymphocytic leukaemia
     Dosage: DOSE REDUCED
     Route: 048
     Dates: start: 20250109

REACTIONS (17)
  - Arrhythmia [Recovered/Resolved]
  - Neutrophil count abnormal [Unknown]
  - Large intestine polyp [Unknown]
  - Lung disorder [Unknown]
  - White blood cell count decreased [Recovering/Resolving]
  - Cardiac device implantation [Recovered/Resolved]
  - Neuropathy peripheral [Recovered/Resolved]
  - Diarrhoea [Unknown]
  - Herpes zoster [Unknown]
  - SARS-CoV-2 test positive [Unknown]
  - Malaise [Recovering/Resolving]
  - Fatigue [Recovering/Resolving]
  - Gastrointestinal polyp [Unknown]
  - Hypoaesthesia [Unknown]
  - Pain in extremity [Unknown]
  - Neutrophil count abnormal [Unknown]
  - Abdominal pain upper [Unknown]

NARRATIVE: CASE EVENT DATE: 20240101
